FAERS Safety Report 18338925 (Version 2)
Quarter: 2020Q4

REPORT INFORMATION
  Report Type: Report from Study
  Country: None (occurrence: RU)
  Receive Date: 20201002
  Receipt Date: 20201104
  Transmission Date: 20210113
  Serious: Yes (Life-Threatening, Hospitalization)
  Sender: FDA-Public Use
  Company Number: RU-ABBVIE-20P-251-3585583-00

PATIENT
  Age: 78 Year
  Sex: Male
  Weight: 86 kg

DRUGS (15)
  1. BORTEZOMIB. [Suspect]
     Active Substance: BORTEZOMIB
     Dosage: C9 AND ON:  D1, 8, 15, AND 22 OF 35-DAY CYCLE
     Route: 058
     Dates: start: 20170612, end: 20200921
  2. COMBILIPEN [Concomitant]
     Indication: NEUROPATHY PERIPHERAL
     Dosage: ON DAYS OF BORTEZOMIB INJECTION
     Route: 030
     Dates: start: 20170403
  3. VENETOCLAX. [Suspect]
     Active Substance: VENETOCLAX
     Route: 048
     Dates: start: 20200806, end: 20200924
  4. LEVOFLOXACIN. [Concomitant]
     Active Substance: LEVOFLOXACIN
     Indication: ANTIBIOTIC PROPHYLAXIS
     Route: 048
     Dates: start: 20190318
  5. BISEPTOL [Concomitant]
     Active Substance: SULFAMETHOXAZOLE\TRIMETHOPRIM
     Indication: ANTIBIOTIC PROPHYLAXIS
     Route: 048
     Dates: start: 20190318
  6. VENETOCLAX. [Suspect]
     Active Substance: VENETOCLAX
     Indication: PLASMA CELL MYELOMA
     Dosage: C1-8: D1-21 OF 21-DAY CYCLE; C9 AND ON: D1-35 OF 35-DAY CYCLE
     Route: 048
     Dates: start: 20170313, end: 20200501
  7. BORTEZOMIB. [Suspect]
     Active Substance: BORTEZOMIB
     Indication: PLASMA CELL MYELOMA
     Dosage: C1-8: D1, 3, 8, AND 11 OF 21-DAY CYCLE
     Route: 058
     Dates: start: 20170313, end: 20170608
  8. MEXIDOL [Concomitant]
     Active Substance: EMOXYPINE SUCCINATE
     Indication: NEUROPATHY PERIPHERAL
     Dosage: ON DAYS OF BORTEZOMIB INJECTION
     Route: 042
     Dates: start: 20170403
  9. VENETOCLAX. [Suspect]
     Active Substance: VENETOCLAX
     Route: 048
     Dates: start: 20200519, end: 20200524
  10. DEXAMETHASONE. [Suspect]
     Active Substance: DEXAMETHASONE
     Indication: PLASMA CELL MYELOMA
     Dosage: C1-8: D1, 2, 4, 5, 8, 9, 11, 12 OF 21D, C9 AND ON: D1, 2, 8, 9, 15, 16, 22, 23 OF 35D
     Route: 048
     Dates: start: 20170313, end: 20200922
  11. ACICLOVIR [Concomitant]
     Active Substance: ACYCLOVIR
     Indication: ANTIVIRAL PROPHYLAXIS
     Route: 048
     Dates: start: 20170312
  12. VAMLOSET [Concomitant]
     Indication: HYPERTENSION
     Dosage: 5+160 MG
     Route: 048
     Dates: start: 201608
  13. CARVEDILOL. [Concomitant]
     Active Substance: CARVEDILOL
     Indication: HYPERTENSION
     Route: 048
     Dates: start: 201608
  14. VENETOCLAX. [Suspect]
     Active Substance: VENETOCLAX
     Route: 048
     Dates: start: 20201028
  15. BORTEZOMIB. [Suspect]
     Active Substance: BORTEZOMIB
     Dosage: C9 AND ON:  D1, 8, 15, AND 22 OF 35-DAY CYCLE
     Route: 058
     Dates: start: 20201028

REACTIONS (1)
  - Peritonitis [Recovered/Resolved]

NARRATIVE: CASE EVENT DATE: 20200923
